FAERS Safety Report 8905934 (Version 2)
Quarter: 2013Q1

REPORT INFORMATION
  Report Type: Spontaneous
  Country: US (occurrence: US)
  Receive Date: 20121109
  Receipt Date: 20130103
  Transmission Date: 20140127
  Serious: Yes (Other)
  Sender: FDA-Public Use
  Company Number: US-GLAXOSMITHKLINE-A0815246A

PATIENT
  Sex: Female

DRUGS (2)
  1. AVANDIA [Suspect]
     Indication: DIABETES MELLITUS
     Dosage: 4MG UNKNOWN
     Route: 048
     Dates: start: 19991227, end: 20000113
  2. ACTOS [Concomitant]
     Indication: DIABETES MELLITUS
     Dosage: 15MG PER DAY
     Dates: start: 199911, end: 19991227

REACTIONS (4)
  - Pulmonary hypertension [Not Recovered/Not Resolved]
  - Cardiac failure congestive [Unknown]
  - Traumatic lung injury [Unknown]
  - Cardiovascular disorder [Unknown]
